FAERS Safety Report 6089073-0 (Version None)
Quarter: 2009Q1

REPORT INFORMATION
  Report Type: 
  Country: None (occurrence: None)
  Receive Date: 20090224
  Receipt Date: 20090224
  Transmission Date: 20090719
  Serious: Yes (Other)
  Sender: FDA-Public Use
  Company Number: D0059648A

PATIENT
  Sex: Female

DRUGS (1)
  1. VIANI [Suspect]
     Route: 055

REACTIONS (1)
  - CATARACT [None]
